FAERS Safety Report 9135068 (Version 3)
Quarter: 2013Q2

REPORT INFORMATION
  Report Type: Spontaneous
  Country: MY (occurrence: MY)
  Receive Date: 20130304
  Receipt Date: 20130522
  Transmission Date: 20140414
  Serious: Yes (Death, Hospitalization)
  Sender: FDA-Public Use
  Company Number: MY-CELGENEUS-101-21880-13023704

PATIENT
  Age: 51 Year
  Sex: Male
  Weight: 78 kg

DRUGS (6)
  1. REVLIMID [Suspect]
     Indication: PLASMA CELL MYELOMA
     Dosage: 10 MILLIGRAM
     Route: 048
     Dates: start: 20120516
  2. DEXAMETHASONE [Suspect]
     Indication: PLASMA CELL MYELOMA
     Dosage: 12 MILLIGRAM
     Route: 065
     Dates: start: 20120516
  3. ASPIRINE [Concomitant]
     Indication: THROMBOSIS PROPHYLAXIS
     Dosage: 75 MILLIGRAM
     Route: 065
     Dates: start: 20120516
  4. RANITIDINE [Concomitant]
     Indication: PROPHYLAXIS
     Dosage: 300 MILLIGRAM
     Route: 065
     Dates: start: 20120516
  5. BACTRIM [Concomitant]
     Indication: PROPHYLAXIS
     Dosage: 480 MILLIGRAM
     Route: 065
     Dates: start: 20120516
  6. PAMIDRONATE [Concomitant]
     Indication: PROPHYLAXIS
     Route: 065
     Dates: start: 20120531

REACTIONS (3)
  - Pneumonia [Fatal]
  - Multi-organ failure [Fatal]
  - Coma [Fatal]
